FAERS Safety Report 10213488 (Version 1)
Quarter: 2014Q2

REPORT INFORMATION
  Report Type: Spontaneous
  Country: US (occurrence: None)
  Receive Date: 20140529
  Receipt Date: 20140529
  Transmission Date: 20141212
  Serious: Yes (Hospitalization)
  Sender: FDA-Public Use
  Company Number: E7389-01852-SPO-US

PATIENT
  Age: 73 Year
  Sex: Female

DRUGS (1)
  1. HALAVEN [Suspect]
     Indication: BREAST CANCER
     Route: 042
     Dates: start: 20111209

REACTIONS (5)
  - Hepatic enzyme increased [None]
  - Dehydration [None]
  - Asthenia [None]
  - Hypophagia [None]
  - Fluid intake reduced [None]
